FAERS Safety Report 15859129 (Version 1)
Quarter: 2019Q1

REPORT INFORMATION
  Report Type: Spontaneous
  Country: CO (occurrence: CO)
  Receive Date: 20190123
  Receipt Date: 20190123
  Transmission Date: 20190417
  Serious: Yes (Hospitalization)
  Sender: FDA-Public Use
  Company Number: CO-ALLERGAN-1902412US

PATIENT
  Age: 6 Year
  Sex: Female
  Weight: 16 kg

DRUGS (1)
  1. BOTOX [Suspect]
     Active Substance: ONABOTULINUMTOXINA
     Indication: CEREBRAL PALSY
     Dosage: ACTUAL: 50U EACH SIDE OF ADDUCTORS, 20U EACH SIDE OF BRANCHIO RADIAL AND 30U EACH SIDE OF BRACHIAL
     Route: 030
     Dates: start: 20180918, end: 20180918

REACTIONS (4)
  - Off label use [Unknown]
  - Dysphagia [Unknown]
  - Influenza [Unknown]
  - Drug ineffective [Unknown]

NARRATIVE: CASE EVENT DATE: 2018
